FAERS Safety Report 9809234 (Version 1)
Quarter: 2014Q1

REPORT INFORMATION
  Report Type: Report from Study
  Country: DE (occurrence: DE)
  Receive Date: 20140110
  Receipt Date: 20140110
  Transmission Date: 20141002
  Serious: Yes (Death)
  Sender: FDA-Public Use
  Company Number: DE-BAXTER-2014BAX001382

PATIENT
  Sex: 0

DRUGS (6)
  1. SEVOFLURAN BAXTER 100 % FL?SSIGKEIT ZUR HERSTELLUNG EINES DAMPFS ZUR I [Suspect]
     Indication: ANAESTHESIA
     Route: 055
  2. SUFENTANIL [Suspect]
     Indication: ANAESTHESIA
     Route: 065
  3. MIDAZOLAM [Suspect]
     Indication: ANAESTHESIA
     Route: 065
  4. PANCURONIUM BROMIDE [Suspect]
     Indication: NEUROMUSCULAR BLOCKADE
     Route: 065
  5. APROTININ [Suspect]
     Indication: PRODUCT USED FOR UNKNOWN INDICATION
     Dosage: APPROXIMATELY 5-6 X 10^6 KALLIKREIN INHIBITING UNITS
     Route: 065
  6. ROCURONIUM [Suspect]
     Indication: NEUROMUSCULAR BLOCKADE
     Route: 065

REACTIONS (1)
  - Multi-organ failure [Fatal]
